FAERS Safety Report 10519629 (Version 2)
Quarter: 2014Q4

REPORT INFORMATION
  Report Type: Spontaneous
  Country: US (occurrence: US)
  Receive Date: 20141015
  Receipt Date: 20141031
  Transmission Date: 20150528
  Serious: Yes (Hospitalization)
  Sender: FDA-Public Use
  Company Number: US-PFIZER INC-2014282128

PATIENT
  Age: 60 Year
  Sex: Female

DRUGS (3)
  1. PROCARDIA XL [Suspect]
     Active Substance: NIFEDIPINE
     Indication: CARDIAC FAILURE CONGESTIVE
  2. HYDRAZINE [Concomitant]
     Active Substance: HYDRAZINE SULFATE
     Dosage: UNK
  3. PROCARDIA XL [Suspect]
     Active Substance: NIFEDIPINE
     Indication: HYPERTENSION
     Dosage: UNK

REACTIONS (3)
  - Hypertension [Unknown]
  - Polyuria [Unknown]
  - Nasopharyngitis [Unknown]
